FAERS Safety Report 7396016-6 (Version None)
Quarter: 2011Q2

REPORT INFORMATION
  Report Type: 
  Country: None (occurrence: None)
  Receive Date: 20110406
  Receipt Date: 20110328
  Transmission Date: 20111010
  Serious: Yes (Other)
  Sender: FDA-Public Use
  Company Number: US-ELI_LILLY_AND_COMPANY-US201103008400

PATIENT
  Sex: Female

DRUGS (3)
  1. ADVAIR DISKUS 100/50 [Concomitant]
     Indication: ASTHMA
     Dosage: UNK
  2. HUMALOG [Suspect]
     Indication: DIABETES MELLITUS
     Dosage: 5 U, TID
  3. LANTUS [Concomitant]
     Dosage: UNK

REACTIONS (4)
  - VISUAL ACUITY REDUCED [None]
  - VISION BLURRED [None]
  - CATARACT [None]
  - MACULAR DEGENERATION [None]
